FAERS Safety Report 13605434 (Version 1)
Quarter: 2017Q2

REPORT INFORMATION
  Report Type: Spontaneous
  Country: US (occurrence: US)
  Receive Date: 20170602
  Receipt Date: 20170602
  Transmission Date: 20170830
  Serious: Yes (Disabling)
  Sender: FDA-Public Use
  Company Number: None

PATIENT
  Age: 23 Year
  Sex: Female
  Weight: 83.25 kg

DRUGS (1)
  1. AL0082706 ALBA BOTANICA HW SUNSCREEN GREEN TEA SPF45 [Suspect]
     Active Substance: AVOBENZONE\HOMOSALATE\OCTISALATE\OCTOCRYLENE
     Indication: PROPHYLAXIS AGAINST SOLAR RADIATION
     Route: 061
     Dates: start: 20160718, end: 20160912

REACTIONS (11)
  - Eye irritation [None]
  - Rhinorrhoea [None]
  - Eye pain [None]
  - Drug ineffective [None]
  - Sinus headache [None]
  - Ocular discomfort [None]
  - Ocular hyperaemia [None]
  - Vision blurred [None]
  - Photophobia [None]
  - Seasonal allergy [None]
  - Lacrimation increased [None]

NARRATIVE: CASE EVENT DATE: 20160718
